FAERS Safety Report 9669484 (Version 3)
Quarter: 2013Q4

REPORT INFORMATION
  Report Type: Spontaneous
  Country: JP (occurrence: JP)
  Receive Date: 20131105
  Receipt Date: 20131111
  Transmission Date: 20140711
  Serious: Yes (Hospitalization)
  Sender: FDA-Public Use
  Company Number: JP-PFIZER INC-2013312524

PATIENT
  Age: 51 Year
  Sex: Female
  Weight: 60 kg

DRUGS (3)
  1. TECTA [Suspect]
     Indication: GASTRITIS EROSIVE
     Dosage: 1 DF, 1X/DAY
     Route: 048
     Dates: start: 20131017
  2. DIOVANE [Concomitant]
     Dosage: UNK
     Dates: start: 2008
  3. ZYXEM [Concomitant]
     Dosage: UNK
     Dates: start: 20131013

REACTIONS (8)
  - Decreased appetite [Not Recovered/Not Resolved]
  - Gastrooesophageal reflux disease [Not Recovered/Not Resolved]
  - Syncope [Recovered/Resolved]
  - Abdominal pain upper [Recovered/Resolved]
  - Eructation [Unknown]
  - Vision blurred [Not Recovered/Not Resolved]
  - Dry mouth [Not Recovered/Not Resolved]
  - Dysgeusia [Not Recovered/Not Resolved]
